FAERS Safety Report 4770683-5 (Version None)
Quarter: 2005Q3

REPORT INFORMATION
  Report Type: 
  Country: None (occurrence: None)
  Receive Date: 20050915
  Receipt Date: 20050907
  Transmission Date: 20060218
  Serious: Yes (Death, Hospitalization)
  Sender: FDA-Public Use
  Company Number: US-JNJFOC-20050902369

PATIENT
  Age: 39 Year
  Sex: Male

DRUGS (3)
  1. ACETAMINOPHEN [Suspect]
     Route: 048
  2. ACETAMINOPHEN [Suspect]
     Indication: SUICIDE ATTEMPT
     Dosage: 'WHOLE BOTTLE'
     Route: 048
  3. ETHANOL [Suspect]
     Indication: SUICIDE ATTEMPT
     Route: 048

REACTIONS (10)
  - COMPLETED SUICIDE [None]
  - CONVULSION [None]
  - HAEMORRHAGE INTRACRANIAL [None]
  - HEPATIC FAILURE [None]
  - INTENTIONAL MISUSE [None]
  - MENTAL STATUS CHANGES [None]
  - OVERDOSE [None]
  - RENAL FAILURE [None]
  - SINUS TACHYCARDIA [None]
  - UNRESPONSIVE TO PAIN STIMULI [None]
